FAERS Safety Report 9114983 (Version 1)
Quarter: 2013Q1

REPORT INFORMATION
  Report Type: Spontaneous
  Country: US (occurrence: None)
  Receive Date: 20130220
  Receipt Date: 20130220
  Transmission Date: 20140127
  Serious: Yes (Hospitalization)
  Sender: FDA-Public Use
  Company Number: None

PATIENT
  Age: 25 Year
  Sex: Male

DRUGS (4)
  1. NORTRIPTYLINE [Suspect]
     Indication: PSYCHOTIC DISORDER
     Dosage: 150 MG  AT BEDTIME  PO
     Route: 048
     Dates: start: 20130204, end: 20130206
  2. NORTRIPTYLINE [Suspect]
     Indication: SPINAL CORD INJURY
     Dosage: 150 MG  AT BEDTIME  PO
     Route: 048
     Dates: start: 20130204, end: 20130206
  3. VENLAFAXINE [Suspect]
     Indication: PSYCHOTIC DISORDER
     Dosage: 75 MG  AT BEDTIME  PO
     Route: 048
     Dates: start: 20130204, end: 20130206
  4. VENLAFAXINE [Suspect]
     Indication: SPINAL CORD INJURY
     Dosage: 75 MG  AT BEDTIME  PO
     Route: 048
     Dates: start: 20130204, end: 20130206

REACTIONS (1)
  - Electrocardiogram QT prolonged [None]
